FAERS Safety Report 7221728-4 (Version None)
Quarter: 2011Q1

REPORT INFORMATION
  Report Type: 
  Country: None (occurrence: None)
  Receive Date: 20110112
  Receipt Date: 20101222
  Transmission Date: 20110831
  Serious: No
  Sender: FDA-Public Use
  Company Number: US-B.I. PHARMACEUTICALS,INC./RIDGEFIELD-2010-BP-15370BP

PATIENT
  Sex: Male

DRUGS (7)
  1. PRADAXA [Suspect]
     Indication: ATRIAL FIBRILLATION
     Dosage: 300 MG
     Route: 048
     Dates: start: 20101201
  2. LISINOPRIL [Concomitant]
     Indication: HYPERTENSION
  3. METOPROLOL [Concomitant]
     Indication: HYPERTENSION
  4. LAMICTAL [Concomitant]
     Indication: DEPRESSION
  5. TRICOR [Concomitant]
     Indication: BLOOD CHOLESTEROL INCREASED
  6. ROPINIROLE [Concomitant]
     Indication: MUSCLE SPASMS
  7. LYRICA [Concomitant]
     Indication: MUSCLE SPASMS

REACTIONS (3)
  - TESTICULAR DISORDER [None]
  - CHILLS [None]
  - ABDOMINAL PAIN UPPER [None]
